FAERS Safety Report 8008163-6 (Version None)
Quarter: 2011Q4

REPORT INFORMATION
  Report Type: 
  Country: None (occurrence: None)
  Receive Date: 20111227
  Receipt Date: 20111220
  Transmission Date: 20120403
  Serious: Yes (Other)
  Sender: FDA-Public Use
  Company Number: US-AMGEN-USASP2011060849

PATIENT
  Age: 71 Year
  Sex: Female
  Weight: 77 kg

DRUGS (8)
  1. ENBREL [Suspect]
     Dosage: 50 MG, QWK
     Dates: start: 20110801
  2. FISH OIL [Concomitant]
     Dosage: UNK
  3. DILTIAZEM HCL [Concomitant]
     Dosage: UNK
  4. OMEPRAZOLE [Concomitant]
     Dosage: UNK
  5. LISINOPRIL AND HYDROCHLOROTHIAZIDE [Concomitant]
     Dosage: UNK
  6. CALCIUM ACETATE [Concomitant]
     Dosage: UNK
  7. ENBREL [Suspect]
     Indication: PSORIATIC ARTHROPATHY
     Dosage: 50 MG, QWK
     Route: 058
     Dates: start: 20110725
  8. ASPIRIN [Concomitant]
     Dosage: UNK

REACTIONS (2)
  - BURNING SENSATION [None]
  - PARAESTHESIA [None]
